FAERS Safety Report 20652614 (Version 1)
Quarter: 2022Q1

REPORT INFORMATION
  Report Type: Spontaneous
  Country: JP (occurrence: JP)
  Receive Date: 20220330
  Receipt Date: 20220330
  Transmission Date: 20220423
  Serious: Yes (Hospitalization, Other)
  Sender: FDA-Public Use
  Company Number: JP-ELI_LILLY_AND_COMPANY-JP202203011462

PATIENT
  Age: 70 Year
  Sex: Male

DRUGS (7)
  1. NECITUMUMAB [Suspect]
     Active Substance: NECITUMUMAB
     Indication: Squamous cell carcinoma of lung
     Dosage: 800 MG, UNKNOWN
     Route: 041
     Dates: start: 20210812, end: 20211021
  2. GEMCITABINE HYDROCHLORIDE [Suspect]
     Active Substance: GEMCITABINE HYDROCHLORIDE
     Indication: Squamous cell carcinoma of lung
     Dosage: 1800 MG, UNKNOWN
     Route: 041
     Dates: start: 20210812, end: 20211021
  3. CISPLATIN [Suspect]
     Active Substance: CISPLATIN
     Indication: Squamous cell carcinoma of lung
     Dosage: 110 MG, UNKNOWN
     Route: 065
     Dates: start: 20210812, end: 20211021
  4. LINAGLIPTIN [Concomitant]
     Active Substance: LINAGLIPTIN
     Route: 048
  5. VOGLIBOSE [Concomitant]
     Active Substance: VOGLIBOSE
     Route: 048
  6. DIMEMORFAN PHOSPHATE [Concomitant]
     Active Substance: DIMEMORFAN PHOSPHATE
     Indication: Squamous cell carcinoma of lung
     Route: 048
  7. L CYSTEINE [Concomitant]
     Indication: Squamous cell carcinoma of lung
     Route: 048

REACTIONS (5)
  - Pneumonia [Recovered/Resolved]
  - Staphylococcus test positive [Unknown]
  - Anaemia [Unknown]
  - Renal disorder [Unknown]
  - Malnutrition [Unknown]

NARRATIVE: CASE EVENT DATE: 20211027
